FAERS Safety Report 4766585-0 (Version None)
Quarter: 2005Q3

REPORT INFORMATION
  Report Type: 
  Country: None (occurrence: None)
  Receive Date: 20050908
  Receipt Date: 20050825
  Transmission Date: 20060218
  Serious: Yes (Other)
  Sender: FDA-Public Use
  Company Number: 2005-BP-13654RO

PATIENT
  Age: 65 Year
  Sex: Female

DRUGS (5)
  1. PREDNISONE TAB [Suspect]
     Indication: RHEUMATOID ARTHRITIS
     Dosage: 10 MG DAILY (10 MG), PO
     Route: 048
     Dates: start: 20050201
  2. METHOTREXATE [Suspect]
     Indication: RHEUMATOID ARTHRITIS
     Dosage: 10 MG PER WEEK, PO
     Route: 048
     Dates: start: 20050203
  3. ETHAMBUTOL (ETHAMBUTOL) [Suspect]
     Indication: TUBERCULOSIS
     Dosage: 400 MG DAILY (400 MG), PO
     Route: 048
     Dates: start: 20040801, end: 20050602
  4. RIFAMPICIN [Suspect]
     Indication: TUBERCULOSIS
     Dosage: 600 MG DAILY, PO
     Route: 048
     Dates: start: 20040801, end: 20050501
  5. PYRAZINAMIDE [Suspect]
     Indication: TUBERCULOSIS
     Dosage: 1500 MG DAILY (NR), PO
     Route: 048
     Dates: start: 20040801, end: 20050501

REACTIONS (8)
  - BLINDNESS [None]
  - CATARACT [None]
  - DRUG TOXICITY [None]
  - NEOPLASM [None]
  - OPTIC NEUROPATHY [None]
  - VISION BLURRED [None]
  - VISUAL ACUITY REDUCED [None]
  - VISUAL FIELD DEFECT [None]
